FAERS Safety Report 5722369-8 (Version None)
Quarter: 2008Q2

REPORT INFORMATION
  Report Type: 
  Country: None (occurrence: None)
  Receive Date: 20080429
  Receipt Date: 20070705
  Transmission Date: 20081010
  Serious: No
  Sender: FDA-Public Use
  Company Number: US-ASTRAZENECA-2007UW15867

PATIENT
  Age: 68 Year
  Sex: Female
  Weight: 59 kg

DRUGS (3)
  1. NEXIUM [Suspect]
     Indication: DYSPEPSIA
     Route: 048
  2. AVAPRO [Concomitant]
  3. TRICOR [Concomitant]

REACTIONS (5)
  - ABDOMINAL PAIN [None]
  - FATIGUE [None]
  - FEELING DRUNK [None]
  - HEADACHE [None]
  - SOMNOLENCE [None]
